FAERS Safety Report 5995932-7 (Version None)
Quarter: 2008Q4

REPORT INFORMATION
  Report Type: 
  Country: None (occurrence: None)
  Receive Date: 20081212
  Receipt Date: 20081202
  Transmission Date: 20090506
  Serious: Yes (Hospitalization, Other)
  Sender: FDA-Public Use
  Company Number: US-ABBOTT-08P-163-0474813-00

PATIENT
  Sex: Male
  Weight: 95.34 kg

DRUGS (4)
  1. TRICOR [Suspect]
     Indication: BLOOD TRIGLYCERIDES INCREASED
     Route: 048
     Dates: start: 20050324, end: 20060302
  2. LOSARTAN POTASSIUM [Concomitant]
     Indication: HYPERTENSION
     Dates: start: 20021102
  3. AMLODIPINE [Concomitant]
     Indication: HYPERTENSION
     Dates: start: 20031114
  4. CETIRIZINE HYDROCHLORIDE [Concomitant]
     Indication: HYPERSENSITIVITY

REACTIONS (3)
  - BILE DUCT OBSTRUCTION [None]
  - CHOLELITHIASIS [None]
  - PANCREATITIS [None]
